FAERS Safety Report 9001490 (Version 3)
Quarter: 2013Q1

REPORT INFORMATION
  Report Type: Spontaneous
  Country: JP (occurrence: JP)
  Receive Date: 20130107
  Receipt Date: 20130225
  Transmission Date: 20140127
  Serious: Yes (Death, Other)
  Sender: FDA-Public Use
  Company Number: JP-ALEXION-A201202512

PATIENT
  Age: 82 Year
  Sex: Male

DRUGS (6)
  1. SOLIRIS 300MG [Suspect]
     Indication: PAROXYSMAL NOCTURNAL HAEMOGLOBINURIA
     Dosage: 600 MG, QW
     Route: 042
     Dates: start: 20120808, end: 20120829
  2. SOLIRIS 300MG [Suspect]
     Dosage: 900 MG, Q2W
     Route: 042
     Dates: start: 20120905, end: 20121031
  3. SOLIRIS 300MG [Suspect]
     Dosage: 600 MG, QW
     Route: 042
     Dates: start: 20121031, end: 20121031
  4. PREDONINE [Concomitant]
     Dosage: 20 MG, QD
     Dates: start: 20120510, end: 20121225
  5. NEORAL [Concomitant]
     Dosage: 100 MG, QD
     Dates: start: 20120514, end: 20121121
  6. ZYLORIC [Concomitant]
     Dosage: 50 MG, QD
     Dates: start: 20120510, end: 20121128

REACTIONS (5)
  - Renal failure acute [Fatal]
  - Blood lactate dehydrogenase increased [Unknown]
  - Haemoglobin decreased [Unknown]
  - Drug ineffective [Unknown]
  - Infection [Unknown]
